FAERS Safety Report 10864328 (Version 1)
Quarter: 2015Q1

REPORT INFORMATION
  Report Type: Spontaneous
  Country: JP (occurrence: JP)
  Receive Date: 20150224
  Receipt Date: 20150224
  Transmission Date: 20150721
  Serious: Yes (Death)
  Sender: FDA-Public Use
  Company Number: JP-BAUSCH-BL-2015-003159

PATIENT
  Age: 79 Year
  Sex: Male

DRUGS (3)
  1. TAXOTERE [Suspect]
     Active Substance: DOCETAXEL
     Indication: OESOPHAGEAL CARCINOMA
     Dosage: EVERY THREE WEEKS
     Route: 042
     Dates: start: 20140331, end: 20140331
  2. FLUOROURACIL. [Suspect]
     Active Substance: FLUOROURACIL
     Indication: OESOPHAGEAL CARCINOMA
     Route: 065
     Dates: start: 20140331, end: 20140404
  3. CISPLATIN. [Suspect]
     Active Substance: CISPLATIN
     Indication: OESOPHAGEAL CARCINOMA
     Dosage: EVERY THREE WEEKS
     Route: 065
     Dates: start: 20140331, end: 20140331

REACTIONS (7)
  - Blood chloride increased [Unknown]
  - Blood potassium increased [Unknown]
  - Diarrhoea [Unknown]
  - Enterocolitis [Fatal]
  - Febrile neutropenia [Fatal]
  - Body temperature increased [Fatal]
  - Blood sodium increased [Unknown]

NARRATIVE: CASE EVENT DATE: 20140403
